FAERS Safety Report 9346410 (Version 1)
Quarter: 2013Q2

REPORT INFORMATION
  Report Type: Spontaneous
  Country: US (occurrence: US)
  Receive Date: 20130613
  Receipt Date: 20130613
  Transmission Date: 20140414
  Serious: Yes (Other)
  Sender: FDA-Public Use
  Company Number: US-PFIZER INC-2013175915

PATIENT
  Age: 45 Year
  Sex: Female
  Weight: 74.83 kg

DRUGS (2)
  1. XANAX [Suspect]
     Indication: DEPRESSION
     Dosage: 0.25 MG, 1X/DAY
     Dates: end: 1996
  2. DEPAKOTE [Concomitant]
     Dosage: 500 MG, UNK

REACTIONS (3)
  - Drug dependence [Unknown]
  - Drug withdrawal syndrome [Unknown]
  - Off label use [Unknown]
